FAERS Safety Report 4750354-1 (Version None)
Quarter: 2005Q3

REPORT INFORMATION
  Report Type: 
  Country: None (occurrence: None)
  Receive Date: 20050818
  Receipt Date: 20050811
  Transmission Date: 20060218
  Serious: Yes (Hospitalization, Other)
  Sender: FDA-Public Use
  Company Number: 2005RL000088

PATIENT
  Age: 24 Year
  Sex: Female

DRUGS (3)
  1. NIZATIDINE [Suspect]
     Indication: GASTRITIS
     Dosage: 75 MG; BID, PO
     Route: 048
     Dates: start: 20050621, end: 20050710
  2. FERROUS SODIUM CITRATE [Concomitant]
  3. OTC COLD MEDICATION [Concomitant]

REACTIONS (16)
  - ANAPHYLACTOID REACTION [None]
  - ARTHRALGIA [None]
  - CHILLS [None]
  - CONJUNCTIVAL HYPERAEMIA [None]
  - EYE PAIN [None]
  - HEADACHE [None]
  - HYPERSENSITIVITY [None]
  - HYPERTHERMIA [None]
  - HYPERVENTILATION [None]
  - HYPOAESTHESIA [None]
  - LACRIMATION INCREASED [None]
  - MUSCULOSKELETAL STIFFNESS [None]
  - NASOPHARYNGITIS [None]
  - TREMOR [None]
  - VISION BLURRED [None]
  - VOMITING [None]
